FAERS Safety Report 7817797-0 (Version None)
Quarter: 2011Q4

REPORT INFORMATION
  Report Type: 
  Country: None (occurrence: None)
  Receive Date: 20111017
  Receipt Date: 20111013
  Transmission Date: 20120403
  Serious: Yes (Death, Other)
  Sender: FDA-Public Use
  Company Number: US-AMGEN-USASP2011032891

PATIENT
  Age: 86 Year
  Sex: Male
  Weight: 63.492 kg

DRUGS (3)
  1. LACTULOSE [Concomitant]
     Indication: HEPATIC ENCEPHALOPATHY
     Dosage: 10 UNK, Q6H
     Route: 048
     Dates: start: 20110204
  2. NPLATE [Suspect]
     Indication: IDIOPATHIC THROMBOCYTOPENIC PURPURA
     Dosage: 250 MUG, QWK
     Route: 058
     Dates: start: 20110114, end: 20110304
  3. ULTRAM [Concomitant]
     Indication: PAIN
     Dosage: 50 UNK, Q6H
     Route: 048
     Dates: start: 20110202

REACTIONS (4)
  - AUTOIMMUNE LYMPHOPROLIFERATIVE SYNDROME [None]
  - HEPATIC ENCEPHALOPATHY [None]
  - PAIN [None]
  - HEPATIC FAILURE [None]
